FAERS Safety Report 7708635-5 (Version None)
Quarter: 2011Q3

REPORT INFORMATION
  Report Type: 
  Country: None (occurrence: None)
  Receive Date: 20110825
  Receipt Date: 20110819
  Transmission Date: 20111222
  Serious: Yes (Hospitalization)
  Sender: FDA-Public Use
  Company Number: FR-B.I. PHARMACEUTICALS,INC./RIDGEFIELD-2011-FF-00780FF

PATIENT
  Sex: Male

DRUGS (2)
  1. MEDICATIONS NOT FURTHER SPECIFIED [Concomitant]
  2. SPIRIVA [Suspect]
     Indication: BRONCHITIS CHRONIC
     Route: 055

REACTIONS (1)
  - ACUTE PULMONARY OEDEMA [None]
